FAERS Safety Report 14204621 (Version 1)
Quarter: 2017Q4

REPORT INFORMATION
  Report Type: Report from Study
  Country: ES (occurrence: ES)
  Receive Date: 20171120
  Receipt Date: 20171120
  Transmission Date: 20180321
  Serious: Yes (Other)
  Sender: FDA-Public Use
  Company Number: ES-PFIZER INC-2017494257

PATIENT
  Sex: Female

DRUGS (2)
  1. PACLITAXEL. [Suspect]
     Active Substance: PACLITAXEL
     Indication: CERVIX CARCINOMA
     Dosage: 50 MG/M2, CYCLIC (1-HOUR CONTINUOUS INTRAVENOUS INFUSION,ON A WEEKLY BASIS FOR 6 CYCLES)
     Route: 042
  2. CISPLATIN. [Suspect]
     Active Substance: CISPLATIN
     Indication: CERVIX CARCINOMA
     Dosage: 40 MG/M2, CYCLIC (ON A WEEKLY BASIS FOR 6 CYCLES)

REACTIONS (1)
  - Necrosis [Unknown]
